FAERS Safety Report 5621792-X (Version None)
Quarter: 2008Q1

REPORT INFORMATION
  Report Type: 
  Country: None (occurrence: None)
  Receive Date: 20080211
  Receipt Date: 20080129
  Transmission Date: 20080703
  Serious: Yes (Hospitalization)
  Sender: FDA-Public Use
  Company Number: JP-BAYER-200812610GPV

PATIENT
  Age: 26 Year
  Sex: Female

DRUGS (1)
  1. ASPIRIN [Suspect]
     Indication: DRUG USE FOR UNKNOWN INDICATION
     Dosage: TOTAL DAILY DOSE: 380 MG/KG
     Route: 065

REACTIONS (3)
  - ABDOMINAL PAIN UPPER [None]
  - DRUG TOXICITY [None]
  - GASTRIC MUCOSAL HYPERTROPHY [None]
